FAERS Safety Report 8183524-3 (Version None)
Quarter: 2012Q1

REPORT INFORMATION
  Report Type: 
  Country: None (occurrence: None)
  Receive Date: 20120305
  Receipt Date: 20120222
  Transmission Date: 20120608
  Serious: Yes (Hospitalization, Other)
  Sender: FDA-Public Use
  Company Number: US-ELI_LILLY_AND_COMPANY-US201007004460

PATIENT
  Sex: Female

DRUGS (11)
  1. VITAMIN D [Concomitant]
  2. XANAX [Concomitant]
  3. FORTEO [Suspect]
     Indication: OSTEOPOROSIS
     Dosage: 20 UG, DAILY (1/D)
     Route: 065
     Dates: start: 20100501
  4. FORTEO [Suspect]
     Dosage: 20 UG, DAILY (1/D)
     Route: 065
  5. ACCUPRIL [Concomitant]
  6. CELEBREX [Concomitant]
  7. FISH OIL [Concomitant]
  8. FORTEO [Suspect]
     Dosage: 20 UG, QD
  9. STATIN                             /00084401/ [Concomitant]
  10. CALCIUM [Concomitant]
  11. ICAPS [Concomitant]

REACTIONS (3)
  - PERIPHERAL VASCULAR DISORDER [None]
  - ARTERIAL OCCLUSIVE DISEASE [None]
  - PAIN [None]
